FAERS Safety Report 21119179 (Version 1)
Quarter: 2022Q3

REPORT INFORMATION
  Report Type: Spontaneous
  Country: US (occurrence: None)
  Receive Date: 20220721
  Receipt Date: 20220721
  Transmission Date: 20221026
  Serious: Yes (Other)
  Sender: FDA-Public Use
  Company Number: None

PATIENT
  Age: 39 Year
  Sex: Male
  Weight: 85.5 kg

DRUGS (11)
  1. CABENUVA [Suspect]
     Active Substance: CABOTEGRAVIR\RILPIVIRINE
     Indication: Acquired immunodeficiency syndrome
     Dosage: OTHER FREQUENCY : MONTHLY;?
     Route: 030
  2. VYVANSE [Concomitant]
     Active Substance: LISDEXAMFETAMINE DIMESYLATE
  3. CYMBALTA [Concomitant]
  4. MUCINEX D [Concomitant]
  5. FLONASE [Concomitant]
     Active Substance: FLUTICASONE PROPIONATE
  6. CLARITIN [Concomitant]
  7. MULTI VITAMIN [Concomitant]
  8. OMEGA 3 [Concomitant]
  9. L-METHYLFOLATE [Concomitant]
  10. GREEN TEA [Concomitant]
  11. PROBIOTIC [Concomitant]

REACTIONS (9)
  - Pyrexia [None]
  - Chromaturia [None]
  - Loss of personal independence in daily activities [None]
  - Aggression [None]
  - Aggression [None]
  - Headache [None]
  - Dizziness [None]
  - Fatigue [None]
  - Dyspnoea [None]

NARRATIVE: CASE EVENT DATE: 20220617
